FAERS Safety Report 4511101-1 (Version None)
Quarter: 2004Q4

REPORT INFORMATION
  Report Type: 
  Country: None (occurrence: None)
  Receive Date: 20041015
  Receipt Date: 20040120
  Transmission Date: 20050328
  Serious: Yes (Hospitalization, Other)
  Sender: FDA-Public Use
  Company Number: 2004004008

PATIENT
  Sex: Female

DRUGS (1)
  1. NEURONTIN [Suspect]
     Indication: NEURALGIA
     Dosage: 600 MG (300, BID), ORAL
     Route: 048
     Dates: start: 20020101, end: 20021001

REACTIONS (5)
  - CONVULSION [None]
  - MICTURITION DISORDER [None]
  - POLLAKIURIA [None]
  - RENAL FAILURE [None]
  - RENAL PAIN [None]
